FAERS Safety Report 19613778 (Version 2)
Quarter: 2021Q4

REPORT INFORMATION
  Report Type: Spontaneous
  Country: NL (occurrence: NL)
  Receive Date: 20210727
  Receipt Date: 20211005
  Transmission Date: 20220303
  Serious: Yes (Other)
  Sender: FDA-Public Use
  Company Number: NL-LRB-00592964

PATIENT
  Age: 37 Year
  Sex: Female
  Weight: 72 kg

DRUGS (4)
  1. PREGABALIN [Suspect]
     Active Substance: PREGABALIN
     Indication: Neuralgia
     Dosage: 75 MILLIGRAM, BID, 2X A DAY 1 PIECE
     Route: 065
     Dates: start: 20210514
  2. TRAMADOL CAPSULE 50MG / Brand name not specifiedTRAMADOL CAPSULE 50MG [Concomitant]
     Indication: Product used for unknown indication
     Dosage: CAPSULE, 50 MG (MILLIGRAM) ()
     Route: 065
  3. SERTRALINE HYDROCHLORIDE / Brand name not specifiedSERTRALINE HYDRO... [Concomitant]
     Indication: Product used for unknown indication
     Dosage: TABLET 25MG
     Route: 065
  4. PARACETAMOL TABLET  500MG / Brand name not specifiedPARACETAMOL TAB... [Concomitant]
     Indication: Product used for unknown indication
     Dosage: TABLET, 500 MG (MILLIGRAM) ()
     Route: 065

REACTIONS (5)
  - Urinary retention [Unknown]
  - Dizziness postural [Unknown]
  - Muscle spasms [Unknown]
  - Dysuria [Unknown]
  - Urinary hesitation [Unknown]

NARRATIVE: CASE EVENT DATE: 20210514
